FAERS Safety Report 5734494-6 (Version None)
Quarter: 2008Q2

REPORT INFORMATION
  Report Type: 
  Country: None (occurrence: None)
  Receive Date: 20080512
  Receipt Date: 20080506
  Transmission Date: 20081010
  Serious: Yes (Hospitalization)
  Sender: FDA-Public Use
  Company Number: BR-ASTRAZENECA-2008UW07455

PATIENT
  Age: 66 Year
  Sex: Female
  Weight: 58 kg

DRUGS (3)
  1. ARIMIDEX [Suspect]
     Indication: BREAST CANCER
     Route: 048
     Dates: start: 20050801
  2. GARDENAL [Concomitant]
     Indication: CONVULSION
     Route: 048
  3. SIMVASTATIN [Concomitant]
     Indication: HYPERCHOLESTEROLAEMIA
     Route: 048

REACTIONS (8)
  - ARTHRALGIA [None]
  - CHILLS [None]
  - HYPOTHYROIDISM [None]
  - JOINT SWELLING [None]
  - MALAISE [None]
  - OSTEOPOROSIS [None]
  - TREMOR [None]
  - URINARY TRACT INFECTION [None]
